FAERS Safety Report 9663707 (Version 2)
Quarter: 2013Q4

REPORT INFORMATION
  Report Type: Spontaneous
  Country: BR (occurrence: BR)
  Receive Date: 20131101
  Receipt Date: 20131210
  Transmission Date: 20140711
  Serious: Yes (Other)
  Sender: FDA-Public Use
  Company Number: PHHY2013BR121076

PATIENT
  Age: 55 Year
  Sex: Female
  Weight: 96 kg

DRUGS (8)
  1. FORASEQ [Suspect]
     Indication: CHRONIC OBSTRUCTIVE PULMONARY DISEASE
     Dosage: 2 DF, BID
     Dates: start: 201208
  2. FORASEQ [Suspect]
     Indication: WHEEZING
     Dosage: UNK
     Dates: start: 20131017, end: 20131017
  3. DILTIAZEM HYDROCHLORIDE [Suspect]
     Indication: HEART RATE INCREASED
     Dosage: 1 DF, DAILY
     Route: 048
  4. SELOZOK [Suspect]
     Indication: HEART RATE INCREASED
     Dosage: 1 DF, DAILY
     Route: 048
  5. METFORMIN [Concomitant]
     Indication: DIABETES MELLITUS
     Dosage: 3 DF, DAILY
     Route: 048
  6. AZUKON [Concomitant]
     Indication: DIABETES MELLITUS
     Dosage: 4 DF, DAILY
     Route: 048
  7. JANUVIA [Concomitant]
     Indication: DIABETES MELLITUS
     Dosage: 1 DF, DAILY
     Route: 048
  8. VASOPRIL//ENALAPRIL MALEATE [Concomitant]
     Indication: HYPERTENSION
     Dosage: 2 DF, DAILY
     Route: 048

REACTIONS (18)
  - Swelling face [Recovering/Resolving]
  - Eye swelling [Recovering/Resolving]
  - Heart rate increased [Not Recovered/Not Resolved]
  - Fatigue [Not Recovered/Not Resolved]
  - Abdominal distension [Recovering/Resolving]
  - Increased upper airway secretion [Recovering/Resolving]
  - Dyspnoea [Not Recovered/Not Resolved]
  - Wheezing [Recovering/Resolving]
  - Rhinorrhoea [Unknown]
  - Thyroid disorder [Unknown]
  - Blood thyroid stimulating hormone increased [Recovered/Resolved]
  - Local swelling [Recovering/Resolving]
  - Insomnia [Recovered/Resolved]
  - Nervousness [Unknown]
  - Anxiety [Recovering/Resolving]
  - Cough [Recovering/Resolving]
  - Palpitations [Recovering/Resolving]
  - Condition aggravated [Not Recovered/Not Resolved]
